FAERS Safety Report 11022849 (Version 1)
Quarter: 2015Q2

REPORT INFORMATION
  Report Type: Spontaneous
  Country: US (occurrence: US)
  Receive Date: 20150413
  Receipt Date: 20150413
  Transmission Date: 20150821
  Serious: No
  Sender: FDA-Public Use
  Company Number: US-GLAXOSMITHKLINE-US2015047797

PATIENT
  Sex: Male

DRUGS (3)
  1. ALBUTEROL INHALER INHALATIONAL POWDER [Concomitant]
  2. ADVAIR DISKUS [Suspect]
     Active Substance: FLUTICASONE PROPIONATE\SALMETEROL XINAFOATE
     Indication: CHRONIC OBSTRUCTIVE PULMONARY DISEASE
     Dosage: 1 PUFF(S), BID
     Route: 055
  3. SPIRIVA [Suspect]
     Active Substance: TIOTROPIUM BROMIDE MONOHYDRATE
     Indication: PRODUCT USED FOR UNKNOWN INDICATION
     Dosage: UNK, U
     Route: 065

REACTIONS (5)
  - Aphonia [Recovered/Resolved]
  - Candida infection [Recovered/Resolved]
  - Dysphonia [Recovered/Resolved]
  - Productive cough [Recovering/Resolving]
  - Exercise tolerance decreased [Recovered/Resolved]
